FAERS Safety Report 9448611 (Version 1)
Quarter: 2013Q3

REPORT INFORMATION
  Report Type: Spontaneous
  Country: US (occurrence: US)
  Receive Date: 20130808
  Receipt Date: 20130808
  Transmission Date: 20140515
  Serious: No
  Sender: FDA-Public Use
  Company Number: US-BAUSCH-BL-2013-002105

PATIENT
  Age: 64 Year
  Sex: Female

DRUGS (1)
  1. CROMOLYN SODIUM NASAL SOLUTION USP [Suspect]
     Indication: SNEEZING
     Dosage: ONE SPRAY IN EACH NOSTRIL TWICE DAILY
     Route: 049
     Dates: start: 201303, end: 201303

REACTIONS (1)
  - Epistaxis [Recovered/Resolved]
